FAERS Safety Report 21846539 (Version 2)
Quarter: 2023Q1

REPORT INFORMATION
  Report Type: Report from Study
  Country: US (occurrence: US)
  Receive Date: 20230111
  Receipt Date: 20230120
  Transmission Date: 20230418
  Serious: Yes (Other)
  Sender: FDA-Public Use
  Company Number: US-TAKEDA-2022TUS101151

PATIENT
  Sex: Female

DRUGS (12)
  1. TEDUGLUTIDE [Suspect]
     Active Substance: TEDUGLUTIDE
     Indication: Short-bowel syndrome
     Dosage: 2.42 MILLIGRAM, QD
     Route: 058
     Dates: start: 202211
  2. TEDUGLUTIDE [Suspect]
     Active Substance: TEDUGLUTIDE
     Indication: Short-bowel syndrome
     Dosage: 2.42 MILLIGRAM, QD
     Route: 058
     Dates: start: 202211
  3. TEDUGLUTIDE [Suspect]
     Active Substance: TEDUGLUTIDE
     Indication: Short-bowel syndrome
     Dosage: 2.42 MILLIGRAM, QD
     Route: 058
     Dates: start: 202211
  4. TEDUGLUTIDE [Suspect]
     Active Substance: TEDUGLUTIDE
     Indication: Short-bowel syndrome
     Dosage: 2.42 MILLIGRAM, QD
     Route: 058
     Dates: start: 202211
  5. TEDUGLUTIDE [Suspect]
     Active Substance: TEDUGLUTIDE
     Dosage: 2.42 MILLIGRAM, QD
     Route: 058
     Dates: start: 20221129
  6. TEDUGLUTIDE [Suspect]
     Active Substance: TEDUGLUTIDE
     Dosage: 2.42 MILLIGRAM, QD
     Route: 058
     Dates: start: 20221129
  7. TEDUGLUTIDE [Suspect]
     Active Substance: TEDUGLUTIDE
     Dosage: 2.42 MILLIGRAM, QD
     Route: 058
     Dates: start: 20221129
  8. TEDUGLUTIDE [Suspect]
     Active Substance: TEDUGLUTIDE
     Dosage: 2.42 MILLIGRAM, QD
     Route: 058
     Dates: start: 20221129
  9. TEDUGLUTIDE [Suspect]
     Active Substance: TEDUGLUTIDE
     Dosage: 2.42 MILLIGRAM, QD
     Route: 058
     Dates: start: 20221206
  10. TEDUGLUTIDE [Suspect]
     Active Substance: TEDUGLUTIDE
     Dosage: 2.42 MILLIGRAM, QD
     Route: 058
     Dates: start: 20221206
  11. TEDUGLUTIDE [Suspect]
     Active Substance: TEDUGLUTIDE
     Dosage: 2.42 MILLIGRAM, QD
     Route: 058
     Dates: start: 20221206
  12. TEDUGLUTIDE [Suspect]
     Active Substance: TEDUGLUTIDE
     Dosage: 2.42 MILLIGRAM, QD
     Route: 058
     Dates: start: 20221206

REACTIONS (5)
  - Crohn^s disease [Unknown]
  - Stoma complication [Unknown]
  - Abdominal pain upper [Unknown]
  - Abdominal pain [Not Recovered/Not Resolved]
  - Abdominal distension [Unknown]
